FAERS Safety Report 6657449-6 (Version None)
Quarter: 2010Q1

REPORT INFORMATION
  Report Type: 
  Country: None (occurrence: None)
  Receive Date: 20100330
  Receipt Date: 20100323
  Transmission Date: 20100710
  Serious: Yes (Other)
  Sender: FDA-Public Use
  Company Number: AU-PFIZER INC-2010037237

PATIENT
  Age: 58 Year
  Sex: Female

DRUGS (1)
  1. DEPO-MEDROL [Suspect]
     Dosage: A SINGLE INJECTION
     Dates: start: 20080901

REACTIONS (3)
  - ABDOMINAL PAIN UPPER [None]
  - MELAENA [None]
  - ULCER [None]
